FAERS Safety Report 10039391 (Version 2)
Quarter: 2014Q1

REPORT INFORMATION
  Report Type: Spontaneous
  Country: US (occurrence: US)
  Receive Date: 20140326
  Receipt Date: 20140326
  Transmission Date: 20141002
  Serious: Yes (Disabling)
  Sender: FDA-Public Use
  Company Number: US-GE HEALTHCARE MEDICAL DIAGNOSTICS-OSCN-PR-0711S-0450

PATIENT
  Age: 55 Year
  Sex: Male

DRUGS (14)
  1. OMNISCAN [Suspect]
     Indication: INTERVERTEBRAL DISCITIS
     Route: 042
     Dates: start: 20051129, end: 20051129
  2. OMNISCAN [Suspect]
     Route: 042
     Dates: start: 20051212, end: 20051212
  3. OMNISCAN [Suspect]
     Route: 042
     Dates: start: 20060117, end: 20060117
  4. OMNISCAN [Suspect]
     Route: 042
     Dates: start: 20060307, end: 20060307
  5. OMNISCAN [Suspect]
     Route: 042
     Dates: start: 20060411, end: 20060411
  6. OMNISCAN [Suspect]
     Route: 042
     Dates: start: 20060601, end: 20060601
  7. OMNISCAN [Suspect]
     Route: 042
     Dates: start: 20060919, end: 20060919
  8. SEVELAMER [Concomitant]
  9. CINACALCET [Concomitant]
  10. ZEMPLAR [Concomitant]
  11. EPOGEN [Concomitant]
  12. IRON [Concomitant]
  13. SODIUM BICARB [Concomitant]
  14. FOSRENOL [Concomitant]

REACTIONS (1)
  - Nephrogenic systemic fibrosis [Not Recovered/Not Resolved]
